FAERS Safety Report 8234043-7 (Version None)
Quarter: 2012Q1

REPORT INFORMATION
  Report Type: 
  Country: None (occurrence: None)
  Receive Date: 20120326
  Receipt Date: 20120326
  Transmission Date: 20120608
  Serious: Yes (Life-Threatening, Hospitalization, Other)
  Sender: FDA-Public Use
  Company Number: None

PATIENT
  Age: 80 Year
  Sex: Female
  Weight: 139 kg

DRUGS (2)
  1. ENOXAPARIN [Suspect]
  2. ENOXAPARIN [Suspect]
     Indication: DRUG THERAPY
     Dosage: 120 MG
     Route: 058
     Dates: start: 20120309, end: 20120311

REACTIONS (1)
  - HAEMATOMA [None]
